FAERS Safety Report 7646608-1 (Version None)
Quarter: 2011Q3

REPORT INFORMATION
  Report Type: 
  Country: None (occurrence: None)
  Receive Date: 20110801
  Receipt Date: 20110722
  Transmission Date: 20111222
  Serious: Yes (Death, Other)
  Sender: FDA-Public Use
  Company Number: US-AMGEN-USASP2011037109

PATIENT
  Age: 51 Year
  Sex: Female

DRUGS (3)
  1. RITUXIMAB [Concomitant]
  2. CORTICOSTEROIDS [Concomitant]
  3. NPLATE [Suspect]
     Indication: IDIOPATHIC THROMBOCYTOPENIC PURPURA
     Dosage: 4 A?G/KG, UNK
     Dates: start: 20110112, end: 20110331

REACTIONS (4)
  - BREAST CANCER METASTATIC [None]
  - ACUTE LEUKAEMIA [None]
  - DISEASE PROGRESSION [None]
  - DRUG INEFFECTIVE [None]
